FAERS Safety Report 6404016-5 (Version None)
Quarter: 2009Q4

REPORT INFORMATION
  Report Type: 
  Country: None (occurrence: None)
  Receive Date: 20091016
  Receipt Date: 20090717
  Transmission Date: 20100525
  Serious: No
  Sender: FDA-Public Use
  Company Number: US-ALEXION-A200900413

PATIENT
  Sex: Female
  Weight: 53.741 kg

DRUGS (17)
  1. SOLIRIS [Suspect]
     Indication: PAROXYSMAL NOCTURNAL HAEMOGLOBINURIA
     Dosage: 600 MG, X4
     Route: 042
     Dates: start: 20071207, end: 20071226
  2. SOLIRIS [Suspect]
     Dosage: 900 MG, Q2W
     Route: 042
     Dates: start: 20080104
  3. VITAMIN C                          /00008001/ [Concomitant]
  4. LEVOTHYROXINE SODIUM [Concomitant]
  5. ARICEPT [Concomitant]
  6. CYANOCOBALAMIN [Concomitant]
  7. VITAMIN E                          /00110501/ [Concomitant]
  8. SENTRY [Concomitant]
  9. TRAZODONE [Concomitant]
  10. EXJADE [Concomitant]
  11. TYLENOL (CAPLET) [Suspect]
  12. CALCIUM WITH VITAMIN D             /00944201/ [Concomitant]
  13. VITAMIN A [Concomitant]
  14. IBUPROFEN [Concomitant]
  15. ACTONEL [Concomitant]
  16. LUMIGAN [Concomitant]
  17. DORZOLAMIDE HYDROCHLORIDE W/TIMOLOL MALEATE [Concomitant]

REACTIONS (1)
  - FALL [None]
